FAERS Safety Report 10569727 (Version 1)
Quarter: 2014Q4

REPORT INFORMATION
  Report Type: Spontaneous
  Country: FR (occurrence: FR)
  Receive Date: 20141107
  Receipt Date: 20141107
  Transmission Date: 20150529
  Serious: Yes (Other)
  Sender: FDA-Public Use
  Company Number: FR-ROCHE-1486324

PATIENT
  Age: 58 Year
  Sex: Male

DRUGS (9)
  1. DIFFU K [Concomitant]
     Active Substance: POTASSIUM CHLORIDE
  2. PANTOPRAZOLE [Concomitant]
     Active Substance: PANTOPRAZOLE SODIUM
  3. LOVENOX [Concomitant]
     Active Substance: ENOXAPARIN SODIUM
  4. FOTEMUSTINE [Concomitant]
     Active Substance: FOTEMUSTINE
     Indication: GLIOBLASTOMA
     Route: 065
     Dates: start: 20140825, end: 20140911
  5. KEPPRA [Concomitant]
     Active Substance: LEVETIRACETAM
  6. SOLUPRED (FRANCE) [Concomitant]
     Active Substance: PREDNISOLONE
  7. AVASTIN [Suspect]
     Active Substance: BEVACIZUMAB
     Indication: GLIOBLASTOMA
     Route: 042
     Dates: start: 20140825
  8. TEMERIT [Concomitant]
     Active Substance: NEBIVOLOL
  9. AVASTIN [Suspect]
     Active Substance: BEVACIZUMAB
     Route: 042
     Dates: start: 20141016

REACTIONS (2)
  - Subileus [Not Recovered/Not Resolved]
  - Hepatitis [Not Recovered/Not Resolved]

NARRATIVE: CASE EVENT DATE: 20141016
